FAERS Safety Report 7513667-6 (Version None)
Quarter: 2011Q2

REPORT INFORMATION
  Report Type: 
  Country: None (occurrence: None)
  Receive Date: 20110531
  Receipt Date: 20110525
  Transmission Date: 20111010
  Serious: Yes (Hospitalization, Other)
  Sender: FDA-Public Use
  Company Number: US-AMGEN-USACT2011027342

PATIENT
  Age: 76 Year
  Sex: Male

DRUGS (2)
  1. BLINDED DARBEPOETIN ALFA [Suspect]
     Indication: CARDIAC FAILURE
  2. PLACEBO [Suspect]
     Indication: CARDIAC FAILURE

REACTIONS (2)
  - CARDIAC FAILURE [None]
  - MASS [None]
